FAERS Safety Report 21656160 (Version 1)
Quarter: 2022Q4

REPORT INFORMATION
  Report Type: Spontaneous
  Country: US (occurrence: None)
  Receive Date: 20221128
  Receipt Date: 20221128
  Transmission Date: 20230113
  Serious: Yes (Hospitalization)
  Sender: FDA-Public Use
  Company Number: None

PATIENT
  Sex: Female

DRUGS (1)
  1. ICATIBANT ACETATE [Suspect]
     Active Substance: ICATIBANT ACETATE
     Indication: Complement factor abnormal
     Dosage: OTHER FREQUENCY : AS NEEDED;?
     Route: 058
     Dates: start: 20221103

REACTIONS (3)
  - Swollen tongue [None]
  - Lip swelling [None]
  - Dyspnoea [None]
